FAERS Safety Report 10521322 (Version 1)
Quarter: 2014Q4

REPORT INFORMATION
  Report Type: Report from Study
  Country: CA (occurrence: CA)
  Receive Date: 20141016
  Receipt Date: 20141016
  Transmission Date: 20150528
  Serious: Yes (Other)
  Sender: FDA-Public Use
  Company Number: CA-AMGEN-CANSL2014078999

PATIENT
  Age: 70 Year
  Sex: Female

DRUGS (3)
  1. ELTROXIN [Concomitant]
     Active Substance: LEVOTHYROXINE
     Dosage: 137 MUG, QD
  2. CRESTOR [Concomitant]
     Active Substance: ROSUVASTATIN CALCIUM
     Indication: BLOOD CHOLESTEROL
     Dosage: 5 MG, UNK
  3. PROLIA [Suspect]
     Active Substance: DENOSUMAB
     Indication: OSTEOPOROSIS POSTMENOPAUSAL
     Dosage: 60 MG, Q6MO
     Route: 058
     Dates: start: 20110408

REACTIONS (9)
  - Parathyroidectomy [Unknown]
  - Tenderness [Unknown]
  - Blood pressure increased [Unknown]
  - Arthritis [Unknown]
  - Upper limb fracture [Unknown]
  - Pain [Unknown]
  - Myalgia [Unknown]
  - Thyroid cancer [Unknown]
  - Limb discomfort [Unknown]

NARRATIVE: CASE EVENT DATE: 201302
